FAERS Safety Report 24830447 (Version 1)
Quarter: 2025Q1

REPORT INFORMATION
  Report Type: Spontaneous
  Country: US (occurrence: None)
  Receive Date: 20250109
  Receipt Date: 20250109
  Transmission Date: 20250409
  Serious: Yes (Other)
  Sender: FDA-CTU
  Company Number: None

PATIENT
  Sex: Female
  Weight: 119.25 kg

DRUGS (3)
  1. DESVENLAFAXINE SUCCINATE [Suspect]
     Active Substance: DESVENLAFAXINE SUCCINATE
     Indication: Depression
     Dosage: 1 TABLET DAILY ORAL ?
     Route: 048
     Dates: start: 20241101
  2. DESVENLAFAXINE SUCCINATE [Suspect]
     Active Substance: DESVENLAFAXINE SUCCINATE
     Indication: Anxiety
  3. MULTI-VITAMIN [Concomitant]
     Active Substance: .ALPHA.-TOCOPHEROL ACETATE, DL-\ASCORBIC ACID\CYANOCOBALAMIN\FLUORIDE ION\FOLIC ACID\NIACIN\PYRIDOXI

REACTIONS (8)
  - Dizziness [None]
  - Dizziness [None]
  - Nausea [None]
  - Loss of personal independence in daily activities [None]
  - Feeling abnormal [None]
  - Product dose omission in error [None]
  - Depression [None]
  - Product complaint [None]
